FAERS Safety Report 19904912 (Version 1)
Quarter: 2021Q3

REPORT INFORMATION
  Report Type: Spontaneous
  Country: US (occurrence: US)
  Receive Date: 20210930
  Receipt Date: 20210930
  Transmission Date: 20211014
  Serious: No
  Sender: FDA-Public Use
  Company Number: None

PATIENT
  Sex: Male

DRUGS (2)
  1. BRAFTOVI [Suspect]
     Active Substance: ENCORAFENIB
     Indication: THYROID CANCER
     Route: 048
     Dates: start: 20210805, end: 20210930
  2. MEKTOVI [Concomitant]
     Active Substance: BINIMETINIB
     Dates: start: 20210805, end: 20210930

REACTIONS (1)
  - Hospice care [None]
